FAERS Safety Report 7486072-9 (Version None)
Quarter: 2011Q2

REPORT INFORMATION
  Report Type: 
  Country: None (occurrence: None)
  Receive Date: 20110517
  Receipt Date: 20110504
  Transmission Date: 20111010
  Serious: Yes (Other)
  Sender: FDA-Public Use
  Company Number: PHHY2011GB40331

PATIENT
  Age: 48 Year
  Sex: Male

DRUGS (7)
  1. PREDNISOLONE [Suspect]
     Dosage: 0.2 MG/KG
  2. MYCOPHENOLATE MOFETIL [Suspect]
     Indication: LUNG TRANSPLANT
     Dosage: 2.25 G
  3. ANTI-THYMOCYTE GLOBULIN EQUINE NOS [Suspect]
     Indication: LUNG TRANSPLANT
  4. CYCLOSPORINE [Suspect]
     Indication: LUNG TRANSPLANT
     Dosage: 325 MG
  5. METHYLPREDNISOLONE [Suspect]
     Indication: LUNG TRANSPLANT
  6. PREDNISOLONE [Suspect]
     Dosage: 0.1 MG/KG, UNK
  7. PREDNISOLONE [Suspect]
     Indication: LUNG TRANSPLANT
     Dosage: 1 MG/KG

REACTIONS (7)
  - AORTIC ANEURYSM [None]
  - HEART RATE INCREASED [None]
  - ABDOMINAL TENDERNESS [None]
  - BLOOD PRESSURE INCREASED [None]
  - PAIN [None]
  - CYTOMEGALOVIRUS INFECTION [None]
  - CHEST PAIN [None]
